FAERS Safety Report 21958500 (Version 3)
Quarter: 2023Q4

REPORT INFORMATION
  Report Type: Report from Study
  Country: US (occurrence: US)
  Receive Date: 20230206
  Receipt Date: 20231219
  Transmission Date: 20240110
  Serious: Yes (Hospitalization, Other)
  Sender: FDA-Public Use
  Company Number: US-GW PHARMA-2022-US-034442

PATIENT
  Sex: Female
  Weight: 56.7 kg

DRUGS (17)
  1. EPIDIOLEX [Suspect]
     Active Substance: CANNABIDIOL
     Indication: Product used for unknown indication
     Dosage: 6.4 MILLILITER, BID
     Route: 048
  2. XCOPRI [Suspect]
     Active Substance: CENOBAMATE
     Indication: Product used for unknown indication
     Dosage: 50 MG TABLET
  3. XCOPRI [Suspect]
     Active Substance: CENOBAMATE
     Dosage: 100 MG TABLET
  4. VALPROIC ACID [Suspect]
     Active Substance: VALPROIC ACID
     Indication: Product used for unknown indication
     Dosage: 250 MG CAPSULE
  5. VALPROIC ACID [Suspect]
     Active Substance: VALPROIC ACID
     Dosage: 250 MG/5ML SOLUTION
  6. PREVACID [Concomitant]
     Active Substance: LANSOPRAZOLE
     Indication: Product used for unknown indication
     Dosage: 24HR 15 MG CAPSULE DR
  7. PREVACID [Concomitant]
     Active Substance: LANSOPRAZOLE
     Dosage: 30 MG TAB RAP DR
  8. LEVOTHYROXINE [Concomitant]
     Active Substance: LEVOTHYROXINE
     Indication: Product used for unknown indication
     Dosage: 330 MG TABLET
  9. LEVOTHYROXINE [Concomitant]
     Active Substance: LEVOTHYROXINE
     Dosage: 100 MCG CAPSULE
  10. BANZEL [Concomitant]
     Active Substance: RUFINAMIDE
     Indication: Product used for unknown indication
     Dosage: 200 MG TABLET
  11. BANZEL [Concomitant]
     Active Substance: RUFINAMIDE
     Dosage: 400 MG TABLET
  12. LEVOCARNITINE [Concomitant]
     Active Substance: LEVOCARNITINE
     Indication: Product used for unknown indication
     Dosage: UNK
  13. VIMPAT [Concomitant]
     Active Substance: LACOSAMIDE
     Indication: Product used for unknown indication
  14. CYANOCOBALAMIN\FOLIC ACID [Concomitant]
     Active Substance: CYANOCOBALAMIN\FOLIC ACID
     Indication: Product used for unknown indication
     Dosage: 5000 MCG TAB RAPDIS
  15. VITAMIN D3 [Concomitant]
     Active Substance: CHOLECALCIFEROL
     Indication: Product used for unknown indication
     Dosage: 10(400)/ML DROPS
  16. SOY ISOFLAVONES EXTRACT [Concomitant]
     Indication: Product used for unknown indication
     Dosage: 40 MG TABLET
  17. MUCINEX DM [Concomitant]
     Active Substance: DEXTROMETHORPHAN HYDROBROMIDE\GUAIFENESIN
     Indication: Product used for unknown indication
     Dosage: 1200-60MG TAB.SR 12H

REACTIONS (6)
  - Respiratory disorder [Unknown]
  - Pneumonia bacterial [Unknown]
  - Seizure [Recovering/Resolving]
  - Nasal congestion [Unknown]
  - Dysphagia [Unknown]
  - Fatigue [Unknown]
